FAERS Safety Report 7089619-X (Version None)
Quarter: 2010Q4

REPORT INFORMATION
  Report Type: 
  Country: None (occurrence: None)
  Receive Date: 20101108
  Receipt Date: 20101102
  Transmission Date: 20110411
  Serious: Yes (Death, Hospitalization)
  Sender: FDA-Public Use
  Company Number: US-US-EMD SERONO, INC.-7018273

PATIENT
  Sex: Female
  Weight: 88 kg

DRUGS (16)
  1. NOVANTRONE [Suspect]
     Indication: MULTIPLE SCLEROSIS
     Dates: start: 20080423, end: 20080423
  2. NOVANTRONE [Suspect]
     Dates: start: 20080723, end: 20080723
  3. NOVANTRONE [Suspect]
     Dates: start: 20081022, end: 20081022
  4. NOVANTRONE [Suspect]
     Dates: start: 20090122, end: 20090122
  5. NOVANTRONE [Suspect]
     Dates: start: 20090422, end: 20090422
  6. NOVANTRONE [Suspect]
     Dates: start: 20090722, end: 20090722
  7. NOVANTRONE [Suspect]
     Dates: start: 20091028, end: 20091028
  8. SIMVASTATIN [Concomitant]
     Dates: end: 20100821
  9. AMANTADINE [Concomitant]
     Route: 048
     Dates: end: 20100821
  10. ASPIRIN [Concomitant]
     Route: 048
     Dates: end: 20100821
  11. BACLOFOEN [Concomitant]
     Route: 048
     Dates: end: 20100821
  12. PROVIGIL [Concomitant]
     Indication: FATIGUE
     Route: 048
     Dates: end: 20100821
  13. DECADRON [Concomitant]
     Dates: start: 20090122, end: 20090122
  14. DECADRON [Concomitant]
     Dates: start: 20090722, end: 20090722
  15. ZOFRAN [Concomitant]
     Route: 048
     Dates: start: 20090122, end: 20090122
  16. ZOFRAN [Concomitant]
     Dates: start: 20090722, end: 20090722

REACTIONS (13)
  - ANXIETY [None]
  - ASTHENIA [None]
  - CARDIAC FAILURE CONGESTIVE [None]
  - CARDIOMYOPATHY [None]
  - DECUBITUS ULCER [None]
  - DEPRESSION [None]
  - DYSPNOEA [None]
  - HYPERTENSION [None]
  - MALAISE [None]
  - MULTIPLE SCLEROSIS [None]
  - NAUSEA [None]
  - STAPHYLOCOCCAL INFECTION [None]
  - VISION BLURRED [None]
